FAERS Safety Report 6546828-3 (Version None)
Quarter: 2010Q1

REPORT INFORMATION
  Report Type: 
  Country: None (occurrence: None)
  Receive Date: 20100122
  Receipt Date: 20100111
  Transmission Date: 20100710
  Serious: Yes (Hospitalization)
  Sender: FDA-Public Use
  Company Number: FR-PFIZER INC-2010003527

PATIENT
  Age: 51 Year
  Sex: Female

DRUGS (5)
  1. FARMORUBICINE [Suspect]
     Dosage: 1 DF, CYCLIC
     Route: 042
     Dates: start: 20091104, end: 20091125
  2. FLUOROURACIL [Suspect]
     Dosage: 1 DF, CYCLIC
     Route: 042
     Dates: start: 20091104, end: 20091125
  3. ENDOXAN [Suspect]
     Dosage: 1 DF, CYCLIC
     Route: 042
     Dates: start: 20091104, end: 20091125
  4. SOLU-MEDROL [Concomitant]
  5. ONDANSETRON HCL [Concomitant]

REACTIONS (7)
  - ATRIAL FIBRILLATION [None]
  - ECZEMA [None]
  - OEDEMA [None]
  - PLEURAL EFFUSION [None]
  - PRURITUS [None]
  - PYREXIA [None]
  - SKIN HYPERPIGMENTATION [None]
